FAERS Safety Report 18250021 (Version 2)
Quarter: 2020Q3

REPORT INFORMATION
  Report Type: Report from Study
  Country: None (occurrence: US)
  Receive Date: 20200910
  Receipt Date: 20200912
  Transmission Date: 20201103
  Serious: Yes (Hospitalization)
  Sender: FDA-Public Use
  Company Number: US-ABBVIE-20K-163-3556125-00

PATIENT
  Age: 88 Year
  Sex: Female

DRUGS (1)
  1. RINVOQ [Suspect]
     Active Substance: UPADACITINIB
     Indication: RHEUMATOID ARTHRITIS
     Route: 048

REACTIONS (5)
  - Vomiting [Recovering/Resolving]
  - Dehydration [Recovering/Resolving]
  - Pain in extremity [Recovering/Resolving]
  - Diarrhoea [Recovering/Resolving]
  - Fatigue [Unknown]

NARRATIVE: CASE EVENT DATE: 202006
